FAERS Safety Report 7340151-5 (Version None)
Quarter: 2011Q1

REPORT INFORMATION
  Report Type: 
  Country: None (occurrence: None)
  Receive Date: 20110309
  Receipt Date: 20110210
  Transmission Date: 20110831
  Serious: No
  Sender: FDA-Public Use
  Company Number: US-B.I. PHARMACEUTICALS,INC./RIDGEFIELD-2011-BP-05342BP

PATIENT
  Sex: Male

DRUGS (3)
  1. PRADAXA [Suspect]
     Indication: ANTICOAGULANT THERAPY
     Dosage: 300 MG
     Route: 048
     Dates: start: 20101201
  2. INSULIN [Concomitant]
     Indication: DIABETES MELLITUS
  3. PREDNISONE [Concomitant]
     Indication: EYE DISORDER
     Dates: start: 20101101

REACTIONS (3)
  - FALL [None]
  - SLEEP TALKING [None]
  - CONTUSION [None]
